FAERS Safety Report 10722690 (Version 1)
Quarter: 2015Q1

REPORT INFORMATION
  Report Type: Spontaneous
  Country: JP (occurrence: JP)
  Receive Date: 20150120
  Receipt Date: 20150120
  Transmission Date: 20150721
  Serious: Yes (Other)
  Sender: FDA-Public Use
  Company Number: JP-GLAXOSMITHKLINE-JP2015JPN004759

PATIENT
  Age: 40 Year
  Sex: Female

DRUGS (2)
  1. RELENZA [Suspect]
     Active Substance: ZANAMIVIR
     Indication: INFLUENZA
     Dosage: UNK, BID
     Route: 055
     Dates: start: 20150112
  2. CALONAL [Concomitant]
     Active Substance: ACETAMINOPHEN
     Dosage: UNK

REACTIONS (2)
  - Genital haemorrhage [Unknown]
  - Diarrhoea [Unknown]

NARRATIVE: CASE EVENT DATE: 20150113
